FAERS Safety Report 7501980-8 (Version None)
Quarter: 2011Q2

REPORT INFORMATION
  Report Type: 
  Country: None (occurrence: None)
  Receive Date: 20110525
  Receipt Date: 20110516
  Transmission Date: 20111010
  Serious: Yes (Hospitalization)
  Sender: FDA-Public Use
  Company Number: CA-ELI_LILLY_AND_COMPANY-CA201103005695

PATIENT
  Sex: Female
  Weight: 91 kg

DRUGS (24)
  1. OMEGA 3-6-9 [Concomitant]
     Route: 065
  2. FORTEO [Suspect]
     Indication: OSTEOPOROSIS
     Dosage: 20 UG, QD
     Route: 058
     Dates: start: 20080520, end: 20080701
  3. VITAMIN D [Concomitant]
     Route: 065
  4. CALCIUM CARBONATE [Concomitant]
     Dosage: 500 MG, UNK
     Route: 065
  5. NAPROXEN [Concomitant]
     Route: 065
  6. OMEPRAZOLE [Concomitant]
     Route: 065
  7. SINGULAIR [Concomitant]
     Route: 065
  8. PREDNISONE [Concomitant]
     Dosage: 5 MG, UNK
     Route: 065
  9. HYDROQUININE [Concomitant]
     Route: 065
  10. SPIRIVA [Concomitant]
     Route: 065
  11. LYRICA [Concomitant]
     Route: 065
  12. METHOTREXATE [Concomitant]
     Route: 065
  13. DOMPERIDONE [Concomitant]
     Route: 065
  14. SYNTHROID [Concomitant]
     Route: 065
  15. MSIR [Concomitant]
     Dosage: 10 MG, UNK
     Route: 065
  16. ADVAIR DISKUS 100/50 [Concomitant]
     Route: 065
  17. RAMIPRIL [Concomitant]
     Route: 065
  18. MIRTAZAPINE [Concomitant]
     Route: 065
  19. FLUOXETINE [Concomitant]
     Route: 065
  20. FENTANYL [Concomitant]
     Route: 065
  21. VIT B COMPLEX [Concomitant]
     Route: 065
  22. FORTEO [Suspect]
     Dosage: 20 UG, QD
     Route: 058
     Dates: start: 20090303
  23. FOLIC ACID [Concomitant]
     Route: 065
  24. SULFATRIM [Concomitant]
     Route: 065

REACTIONS (1)
  - ACETABULUM FRACTURE [None]
